FAERS Safety Report 9332876 (Version 1)
Quarter: 2013Q2

REPORT INFORMATION
  Report Type: Spontaneous
  Country: ZA (occurrence: ZA)
  Receive Date: 20130606
  Receipt Date: 20130606
  Transmission Date: 20140414
  Serious: Yes (Death, Life-Threatening, Hospitalization)
  Sender: FDA-Public Use
  Company Number: ZA-B.I. PHARMACEUTICALS,INC./RIDGEFIELD-2013-AP-00271ZA

PATIENT
  Age: 84 Year
  Sex: Male

DRUGS (15)
  1. PRADAXA [Suspect]
     Indication: CEREBROVASCULAR ACCIDENT PROPHYLAXIS
     Dosage: 220 MG
     Route: 048
     Dates: start: 20121204, end: 20130323
  2. PRADAXA [Suspect]
     Indication: ATRIAL FIBRILLATION
  3. TOPZOLE [Concomitant]
     Indication: GASTRIC ULCER
     Dosage: 40 MG
  4. ENALAPRIL [Concomitant]
     Indication: HYPERTENSION
     Dosage: 10 MG
  5. PURESIS [Concomitant]
     Indication: RENAL IMPAIRMENT
     Dosage: 60 MG
  6. METFORMIN [Concomitant]
     Indication: TYPE 2 DIABETES MELLITUS
     Dosage: 1700 MG
  7. SLOW-MAG [Concomitant]
     Dosage: ACCORING TO CANA: ONE TABLET TWICE DAILY
  8. CARVETREND [Concomitant]
     Dosage: 12.5 MG
  9. CIPLAVASC [Concomitant]
     Indication: ATRIAL FIBRILLATION
     Dosage: 5 MG
  10. ZYTOMIL [Concomitant]
     Indication: DEPRESSION
     Dosage: 10 MG
  11. DEPRANOL [Concomitant]
     Dosage: 100 MG
  12. ASPIRIN [Concomitant]
  13. ELTROXIN [Concomitant]
     Dosage: 0.05MG ON A MONDAY, WEDNESDAY AND FRIDAY AND 0.1MG ON TUESDAY, THURSDAY AND SATURDAY
  14. MYROXIN [Concomitant]
  15. MAGNESIUM [Concomitant]

REACTIONS (10)
  - Cardiac failure [Fatal]
  - Myocardial infarction [Not Recovered/Not Resolved]
  - Gastrointestinal haemorrhage [Recovered/Resolved]
  - Melaena [Recovered/Resolved]
  - Fatigue [Recovered/Resolved]
  - Nausea [Recovered/Resolved]
  - Decreased appetite [Recovered/Resolved]
  - Anaemia [Recovered/Resolved]
  - Contusion [Unknown]
  - Cardiac murmur [Unknown]
